FAERS Safety Report 11672013 (Version 1)
Quarter: 2015Q4

REPORT INFORMATION
  Report Type: Spontaneous
  Country: US (occurrence: US)
  Receive Date: 20151027
  Receipt Date: 20151027
  Transmission Date: 20160304
  Serious: No
  Sender: FDA-Public Use
  Company Number: US-ELI_LILLY_AND_COMPANY-US201004006331

PATIENT
  Age: 62 Year
  Sex: Female

DRUGS (2)
  1. ALLI [Concomitant]
     Active Substance: ORLISTAT
     Indication: WEIGHT CONTROL
  2. FORTEO [Suspect]
     Active Substance: TERIPARATIDE
     Indication: OSTEOPOROSIS
     Dosage: 20 UG, DAILY (1/D)
     Route: 065
     Dates: start: 201002

REACTIONS (3)
  - Pigmentation disorder [Unknown]
  - Skin exfoliation [Unknown]
  - Eye disorder [Recovering/Resolving]

NARRATIVE: CASE EVENT DATE: 201002
